FAERS Safety Report 23710230 (Version 2)
Quarter: 2024Q2

REPORT INFORMATION
  Report Type: Spontaneous
  Country: US (occurrence: US)
  Receive Date: 20240405
  Receipt Date: 20240409
  Transmission Date: 20240715
  Serious: No
  Sender: FDA-Public Use
  Company Number: US-AMGEN-USASP2024068564

PATIENT

DRUGS (1)
  1. PROCRIT [Suspect]
     Active Substance: ERYTHROPOIETIN
     Indication: Product used for unknown indication
     Dosage: 20000.00 UNIT/ML
     Route: 065

REACTIONS (1)
  - Expired product administered [Unknown]
